FAERS Safety Report 13549352 (Version 1)
Quarter: 2017Q2

REPORT INFORMATION
  Report Type: Spontaneous
  Country: US (occurrence: US)
  Receive Date: 20170515
  Receipt Date: 20170515
  Transmission Date: 20170830
  Serious: Yes (Hospitalization)
  Sender: FDA-Public Use
  Company Number: None

PATIENT
  Age: 39 Year
  Sex: Female
  Weight: 92.7 kg

DRUGS (5)
  1. CONTRAVE [Suspect]
     Active Substance: BUPROPION HYDROCHLORIDE\NALTREXONE HYDROCHLORIDE
     Indication: WEIGHT CONTROL
     Dosage: ?          QUANTITY:2 CAPSULE(S);?
     Route: 048
     Dates: start: 20170403, end: 20170505
  2. CENTRIZINE [Concomitant]
  3. ARMOUR THYROID [Concomitant]
     Active Substance: THYROID, PORCINE
  4. VITAMIN D [Concomitant]
     Active Substance: CHOLECALCIFEROL
  5. BIOTIN [Concomitant]
     Active Substance: BIOTIN

REACTIONS (6)
  - Dizziness [None]
  - Palpitations [None]
  - Dry mouth [None]
  - Nausea [None]
  - Headache [None]
  - Chest discomfort [None]

NARRATIVE: CASE EVENT DATE: 20170506
